FAERS Safety Report 22148793 (Version 1)
Quarter: 2023Q1

REPORT INFORMATION
  Report Type: Spontaneous
  Country: US (occurrence: US)
  Receive Date: 20230328
  Receipt Date: 20230328
  Transmission Date: 20230418
  Serious: No
  Sender: FDA-Public Use
  Company Number: US-CTI BIOPHARMA-2023US03330

PATIENT

DRUGS (3)
  1. VONJO [Suspect]
     Active Substance: PACRITINIB
     Indication: Myelofibrosis
     Dosage: 200 MG, BID
     Route: 048
     Dates: start: 20221220
  2. VONJO [Suspect]
     Active Substance: PACRITINIB
     Indication: Splenomegaly
  3. JAKAFI [Suspect]
     Active Substance: RUXOLITINIB
     Indication: Product used for unknown indication
     Dosage: UNK

REACTIONS (9)
  - Adverse reaction [Unknown]
  - Back pain [Unknown]
  - Influenza [Unknown]
  - Chills [Unknown]
  - Fatigue [Unknown]
  - Uterine disorder [Unknown]
  - Incorrect dose administered [Unknown]
  - Epistaxis [Unknown]
  - Dyspnoea [Unknown]
